FAERS Safety Report 16078559 (Version 3)
Quarter: 2019Q2

REPORT INFORMATION
  Report Type: Spontaneous
  Country: GB (occurrence: GB)
  Receive Date: 20190315
  Receipt Date: 20190614
  Transmission Date: 20190711
  Serious: Yes (Hospitalization)
  Sender: FDA-Public Use
  Company Number: GB-PFIZER INC-2018522097

PATIENT
  Age: 72 Year
  Sex: Female
  Weight: 66.4 kg

DRUGS (62)
  1. DOXORUBICIN HCL [Suspect]
     Active Substance: DOXORUBICIN HYDROCHLORIDE
     Dosage: UNK
  2. CYCLOPHOSPHAMIDE. [Suspect]
     Active Substance: CYCLOPHOSPHAMIDE
     Dosage: 750 MG/M2, CYCLIC (3X/WEEK)
     Route: 042
     Dates: start: 20181025
  3. OBINUTUZUMAB. [Suspect]
     Active Substance: OBINUTUZUMAB
     Indication: DIFFUSE LARGE B-CELL LYMPHOMA
     Dosage: 1000 MG, (DATE OF MOST RECENT DOSE PRIOR TO SAE ON 25/OCT/2018 AT 11:56)
     Route: 042
     Dates: start: 20181025
  4. PARACETAMOL [Concomitant]
     Active Substance: ACETAMINOPHEN
     Indication: PAIN
     Dosage: 1 G, AS NEEDED
     Route: 065
     Dates: start: 20181123
  5. RANITIDINE. [Concomitant]
     Active Substance: RANITIDINE
     Indication: GASTROINTESTINAL DISORDER PROPHYLAXIS
     Dosage: 300 MG, 1X/DAY
     Route: 065
     Dates: start: 20181025
  6. AMLODIPINE [Concomitant]
     Active Substance: AMLODIPINE BESYLATE
     Dosage: UNK
     Dates: start: 2000, end: 20181108
  7. SIMVASTATIN. [Concomitant]
     Active Substance: SIMVASTATIN
     Dosage: 20 MG, 1X/DAY
     Route: 065
  8. DOMPERIDONE [Concomitant]
     Active Substance: DOMPERIDONE
     Indication: PROPHYLAXIS OF NAUSEA AND VOMITING
     Dosage: UNK
     Dates: start: 20180225
  9. DOMPERIDONE [Concomitant]
     Active Substance: DOMPERIDONE
     Dosage: UNK
     Dates: start: 20181025
  10. PREDNISOLONE. [Concomitant]
     Active Substance: PREDNISOLONE
     Dosage: 80 MG, UNK
     Route: 065
     Dates: start: 20181114, end: 20181118
  11. VINCRISTINE SULFATE. [Suspect]
     Active Substance: VINCRISTINE SULFATE
     Dosage: 2MG/SQ METER 3 WEEKLY
     Route: 042
     Dates: start: 20181025
  12. DOXORUBICIN HCL [Suspect]
     Active Substance: DOXORUBICIN HYDROCHLORIDE
     Dosage: UNK
  13. DOXORUBICIN HCL [Suspect]
     Active Substance: DOXORUBICIN HYDROCHLORIDE
     Dosage: 50 MG/M2, CYCLIC (3XWEEK), DATE OF MOST RECENT DOSE (90 MG/M2) PRIOR TO SAE ON 14/NOV/2018 AT 16:48
     Dates: start: 20181025
  14. RITUXIMAB. [Suspect]
     Active Substance: RITUXIMAB
     Dosage: UNK
  15. RITUXIMAB. [Suspect]
     Active Substance: RITUXIMAB
     Dosage: 375 MG/M2, CYCLIC (3X/WEEK)
     Route: 042
     Dates: start: 20181114
  16. RANITIDINE. [Concomitant]
     Active Substance: RANITIDINE
     Dosage: 300 MG, UNK
     Route: 065
     Dates: start: 20181025
  17. LEVOTHYROXINE. [Concomitant]
     Active Substance: LEVOTHYROXINE
     Dosage: UNK
     Dates: start: 2000
  18. ACICLOVIR [Concomitant]
     Active Substance: ACYCLOVIR
     Indication: PROPHYLAXIS
     Dosage: 600 MG, 1X/DAY
     Route: 065
     Dates: start: 20181025
  19. FILGRASTIM [Concomitant]
     Active Substance: FILGRASTIM
     Dosage: 300 MG, UNK
     Dates: start: 20181123, end: 20181127
  20. FILGRASTIM [Concomitant]
     Active Substance: FILGRASTIM
     Dosage: UNK
     Dates: start: 20181030, end: 20181128
  21. DOXORUBICIN HCL [Suspect]
     Active Substance: DOXORUBICIN HYDROCHLORIDE
     Dosage: 90 MG/M2, DAILY
     Dates: start: 20181114
  22. ALLOPURINOL. [Concomitant]
     Active Substance: ALLOPURINOL
     Indication: TUMOUR LYSIS SYNDROME
     Dosage: 300 MG, 1X/DAY
     Route: 065
     Dates: start: 20181025
  23. ALLOPURINOL. [Concomitant]
     Active Substance: ALLOPURINOL
     Dosage: UNK
     Dates: start: 20181121
  24. METFORMIN [Concomitant]
     Active Substance: METFORMIN HYDROCHLORIDE
     Indication: TYPE 2 DIABETES MELLITUS
     Dosage: 1500 MG, 1X/DAY
     Route: 065
  25. DOMPERIDONE [Concomitant]
     Active Substance: DOMPERIDONE
     Dosage: UNK (10-30 MG)
     Route: 065
     Dates: start: 20181114, end: 20181119
  26. ONDANSETRON [Concomitant]
     Active Substance: ONDANSETRON
     Indication: NAUSEA
     Dosage: UNK
     Dates: start: 20181025
  27. MAGNESIUM [Concomitant]
     Active Substance: MAGNESIUM
     Indication: BLOOD MAGNESIUM DECREASED
     Dosage: UNK
     Dates: start: 20181123, end: 20181123
  28. RENNIES [Concomitant]
     Indication: DYSPEPSIA
     Dosage: UNK
     Dates: start: 201810, end: 201901
  29. VINCRISTINE SULFATE. [Suspect]
     Active Substance: VINCRISTINE SULFATE
     Dosage: 2 MG, 1X/DAY
     Dates: start: 20181114
  30. CYCLOPHOSPHAMIDE. [Suspect]
     Active Substance: CYCLOPHOSPHAMIDE
     Dosage: 750 MG/M2, CYCLIC (3X/WEEK)
     Route: 042
     Dates: start: 20181025
  31. PARACETAMOL [Concomitant]
     Active Substance: ACETAMINOPHEN
     Dosage: UNK
     Dates: start: 20190125
  32. LEVOTHYROXINE. [Concomitant]
     Active Substance: LEVOTHYROXINE
     Indication: HYPOTHYROIDISM
     Dosage: 100 UG, 1X/DAY
     Route: 065
  33. ASPIRIN [ACETYLSALICYLIC ACID] [Concomitant]
     Active Substance: ASPIRIN
     Dosage: 75 MG, 1X/DAY
     Route: 065
  34. CASSIA SENNA [Concomitant]
     Active Substance: HERBALS\SENNOSIDES
     Indication: CONSTIPATION
     Dosage: UNK
     Route: 065
     Dates: start: 20181101
  35. HUMULIN L [Concomitant]
     Active Substance: INSULIN HUMAN
     Indication: HYPERGLYCAEMIA
     Dosage: UNK
     Dates: start: 20181029, end: 20181030
  36. VINCRISTINE SULFATE. [Suspect]
     Active Substance: VINCRISTINE SULFATE
     Indication: DIFFUSE LARGE B-CELL LYMPHOMA
     Dosage: 2 MG, 1X/DAY
     Route: 042
     Dates: start: 20181025
  37. DOXORUBICIN HCL [Suspect]
     Active Substance: DOXORUBICIN HYDROCHLORIDE
     Dosage: UNK
  38. DOXORUBICIN HCL [Suspect]
     Active Substance: DOXORUBICIN HYDROCHLORIDE
     Dosage: 50 MG/M2, CYCLIC (3XWEEK), DATE OF MOST RECENT DOSE (90 MG/M2) PRIOR TO SAE ON 14/NOV/2018 AT 16:48
     Dates: start: 20181025
  39. DOXORUBICIN HCL [Suspect]
     Active Substance: DOXORUBICIN HYDROCHLORIDE
     Dosage: 50 MG/M2, CYCLIC (3XWEEK), DATE OF MOST RECENT DOSE (90 MG/M2) PRIOR TO SAE ON 14/NOV/2018 AT 16:48
     Dates: start: 20181025
  40. CYCLOPHOSPHAMIDE. [Suspect]
     Active Substance: CYCLOPHOSPHAMIDE
     Indication: DIFFUSE LARGE B-CELL LYMPHOMA
     Dosage: 1260 MG, 1X/DAY
     Route: 042
     Dates: start: 20181025
  41. CYCLOPHOSPHAMIDE. [Suspect]
     Active Substance: CYCLOPHOSPHAMIDE
     Dosage: 1260 MG, 1X/DAY
     Route: 042
     Dates: start: 20181025
  42. PARACETAMOL [Concomitant]
     Active Substance: ACETAMINOPHEN
     Dosage: UNK
     Dates: start: 20181025
  43. AMLODIPINE [Concomitant]
     Active Substance: AMLODIPINE BESYLATE
     Indication: HYPERTENSION
     Dosage: 10 MG, UNK
     Route: 065
  44. LOSARTAN. [Concomitant]
     Active Substance: LOSARTAN
     Indication: HYPERTENSION
     Dosage: 50 MG, UNK
     Route: 065
  45. COTRIMOXAZOLE [Concomitant]
     Active Substance: SULFAMETHOXAZOLE\TRIMETHOPRIM
     Dosage: 2880 MG, WEEKLY
     Route: 065
     Dates: start: 20181025
  46. FILGRASTIM [Concomitant]
     Active Substance: FILGRASTIM
     Indication: NEUTROPENIA
     Dosage: 300 UG, UNK
     Route: 065
     Dates: start: 20181120, end: 20181127
  47. VINCRISTINE SULFATE. [Suspect]
     Active Substance: VINCRISTINE SULFATE
     Dosage: UNK
  48. VINCRISTINE SULFATE. [Suspect]
     Active Substance: VINCRISTINE SULFATE
     Dosage: 1.14 MG/M2, CYCLIC (3X/WEEK)
     Route: 042
     Dates: start: 20181025
  49. RITUXIMAB. [Suspect]
     Active Substance: RITUXIMAB
     Indication: DIFFUSE LARGE B-CELL LYMPHOMA
     Dosage: 660 MG, UNK
     Route: 042
     Dates: start: 20181114
  50. PREDNISONE. [Suspect]
     Active Substance: PREDNISONE
     Dosage: 80 MG, UNK
     Dates: start: 20181114, end: 20181118
  51. RO7009789 (CD40 AGONIST) [Suspect]
     Active Substance: SELICRELUMAB
     Indication: DIFFUSE LARGE B-CELL LYMPHOMA
     Dosage: 0.07 MG, 1X/DAY
     Route: 042
     Dates: start: 20181121
  52. GLICLAZIDE [Concomitant]
     Active Substance: GLICLAZIDE
     Indication: TYPE 2 DIABETES MELLITUS
     Dosage: 120 MG, 1X/DAY
     Route: 065
     Dates: start: 2009
  53. LOSARTAN. [Concomitant]
     Active Substance: LOSARTAN
     Dosage: UNK
     Dates: start: 2000, end: 20181101
  54. VINCRISTINE SULFATE. [Suspect]
     Active Substance: VINCRISTINE SULFATE
     Dosage: 2 MG/M2, UNK
     Dates: start: 20181114
  55. DOXORUBICIN HCL [Suspect]
     Active Substance: DOXORUBICIN HYDROCHLORIDE
     Indication: DIFFUSE LARGE B-CELL LYMPHOMA
     Dosage: 90 MG/M2, 1X/DAY
     Route: 042
     Dates: start: 20181025
  56. DOXORUBICIN HCL [Suspect]
     Active Substance: DOXORUBICIN HYDROCHLORIDE
     Dosage: 50 MG/M2, CYCLIC (3XWEEK), DATE OF MOST RECENT DOSE (90 MG/M2) PRIOR TO SAE ON 14/NOV/2018 AT 16:48
     Dates: start: 20181025
  57. PREDNISONE. [Suspect]
     Active Substance: PREDNISONE
     Indication: DIFFUSE LARGE B-CELL LYMPHOMA
     Dosage: 100 MG/KG, CYCLIC (ON DAY 1 MAY BE ADMINISTERED IV, WITH REMAINING DOSES ON DAYS 2-5 ADMINISTERED)
     Route: 042
  58. CHLORPHENIRAMINE C [Concomitant]
     Dosage: UNK
     Dates: start: 20181025
  59. VINCRISTINE SULFATE. [Suspect]
     Active Substance: VINCRISTINE SULFATE
     Dosage: 1.14 MG/M2, CYCLIC (3X/WEEK)
     Route: 042
     Dates: start: 20181025
  60. CYCLOPHOSPHAMIDE. [Suspect]
     Active Substance: CYCLOPHOSPHAMIDE
     Dosage: 1260 UNK, UNK
     Dates: start: 20181114
  61. RITUXIMAB. [Suspect]
     Active Substance: RITUXIMAB
     Dosage: 375 MG/M2, CYCLIC (3X/WEEK)
     Route: 042
     Dates: start: 20181114
  62. METFORMIN [Concomitant]
     Active Substance: METFORMIN HYDROCHLORIDE
     Dosage: UNK
     Dates: start: 1999

REACTIONS (1)
  - Febrile neutropenia [Recovered/Resolved]

NARRATIVE: CASE EVENT DATE: 20181123
